FAERS Safety Report 4949292-0 (Version None)
Quarter: 2006Q1

REPORT INFORMATION
  Report Type: 
  Country: None (occurrence: None)
  Receive Date: 20060315
  Receipt Date: 20060306
  Transmission Date: 20060701
  Serious: Yes (Hospitalization)
  Sender: FDA-Public Use
  Company Number: 2006BI003620

PATIENT
  Age: 42 Year
  Sex: Female
  Weight: 61.2356 kg

DRUGS (1)
  1. AVONEX [Suspect]
     Indication: MULTIPLE SCLEROSIS
     Dosage: 30 UG;QW;IM
     Route: 030
     Dates: start: 20030101

REACTIONS (7)
  - ABDOMINAL PAIN UPPER [None]
  - ARTHRALGIA [None]
  - CHEST PAIN [None]
  - GALLBLADDER PAIN [None]
  - HIATUS HERNIA [None]
  - INFLUENZA LIKE ILLNESS [None]
  - SKIN BURNING SENSATION [None]
